FAERS Safety Report 6313729-5 (Version None)
Quarter: 2009Q3

REPORT INFORMATION
  Report Type: 
  Country: None (occurrence: None)
  Receive Date: 20090814
  Receipt Date: 20090620
  Transmission Date: 20100115
  Serious: Yes (Death, Life-Threatening, Hospitalization)
  Sender: FDA-Public Use
  Company Number: 2009EU002908

PATIENT
  Age: 36 Year
  Sex: Female

DRUGS (11)
  1. TACROLIMUS [Suspect]
     Indication: RENAL TRANSPLANT
     Dosage: 3 MG, BID, ORAL
     Route: 048
     Dates: start: 20030817, end: 20031115
  2. DACLIZUMAB(DACLIZUMAB) [Suspect]
     Indication: RENAL TRANSPLANT
     Dosage: 125 MG,   UNKNOWN/D  IV NOS
     Route: 042
     Dates: start: 20030817, end: 20031011
  3. MYCOPHENOLATE MOFETIL [Suspect]
     Indication: RENAL TRANSPLANT
     Dosage: 250 MG, BID, ORAL
     Route: 048
     Dates: start: 20030817, end: 20031112
  4. METHYLPREDNISOLONE 4MG TAB [Suspect]
     Indication: RENAL TRANSPLANT
     Dosage: 250 MG BID, ORAL     IV NOS
     Route: 048
     Dates: start: 20030816, end: 20031028
  5. METHYLPREDNISOLONE 4MG TAB [Suspect]
     Indication: RENAL TRANSPLANT
     Dosage: 10 MG, BID, ORAL
     Route: 048
     Dates: start: 20030819, end: 20031115
  6. HYDROCORTISON(HYDROCORTISONE) [Suspect]
     Indication: RENAL TRANSPLANT
     Dosage: IV NOS
     Route: 042
  7. PRAVASTATIN SODIUM [Concomitant]
  8. METOPROLOL SUCCINATE [Concomitant]
  9. NORVASC [Concomitant]
  10. CEFAZOLIN [Concomitant]
  11. CEFPODOXIME (CEFPODOXIME) [Concomitant]

REACTIONS (34)
  - ABDOMINAL COMPARTMENT SYNDROME [None]
  - ABDOMINAL RIGIDITY [None]
  - ADHESION [None]
  - ARRHYTHMIA [None]
  - ATAXIA [None]
  - BLOOD CULTURE POSITIVE [None]
  - BLOOD LACTATE DEHYDROGENASE INCREASED [None]
  - BLOOD PRESSURE DECREASED [None]
  - BODY TEMPERATURE DECREASED [None]
  - COLITIS ISCHAEMIC [None]
  - DEHYDRATION [None]
  - DIARRHOEA [None]
  - DISSEMINATED INTRAVASCULAR COAGULATION [None]
  - ELECTROCARDIOGRAM T WAVE INVERSION [None]
  - ESCHERICHIA URINARY TRACT INFECTION [None]
  - GASTROINTESTINAL NECROSIS [None]
  - HYPOTENSION [None]
  - INTESTINAL PERFORATION [None]
  - INTRA-ABDOMINAL HAEMORRHAGE [None]
  - ISCHAEMIA [None]
  - LEUKOCYTOSIS [None]
  - MULTI-ORGAN FAILURE [None]
  - PERITONITIS [None]
  - POST PROCEDURAL HAEMORRHAGE [None]
  - PUPILS UNEQUAL [None]
  - PYREXIA [None]
  - RENAL FAILURE ACUTE [None]
  - SEPSIS [None]
  - SHOCK [None]
  - SINUSITIS [None]
  - STAPHYLOCOCCAL INFECTION [None]
  - TRANSAMINASES INCREASED [None]
  - TRANSPLANT REJECTION [None]
  - WOUND HAEMORRHAGE [None]
